FAERS Safety Report 18622002 (Version 1)
Quarter: 2020Q4

REPORT INFORMATION
  Report Type: Report from Study
  Country: None (occurrence: IL)
  Receive Date: 20201216
  Receipt Date: 20201216
  Transmission Date: 20210114
  Serious: Yes (Hospitalization)
  Sender: FDA-Public Use
  Company Number: IL-ABBVIE-20K-082-3670174-00

PATIENT
  Sex: Male

DRUGS (2)
  1. DUODOPA [Suspect]
     Active Substance: CARBIDOPA\LEVODOPA
     Indication: PARKINSON^S DISEASE
     Route: 050
     Dates: start: 20160530
  2. DUODOPA [Suspect]
     Active Substance: CARBIDOPA\LEVODOPA
     Dosage: CURRENT: MORNING DOSE 5.0ML, CONTINUOUS RATE 2.3ML/HOUR, EXTRA DOSE 1.0ML
     Route: 050

REACTIONS (7)
  - Coronavirus infection [Recovering/Resolving]
  - Stoma site erythema [Recovering/Resolving]
  - Parkinson^s disease [Recovering/Resolving]
  - Stoma site hypergranulation [Recovering/Resolving]
  - Speech disorder [Recovering/Resolving]
  - Gait inability [Recovering/Resolving]
  - Stoma site discharge [Recovering/Resolving]
